FAERS Safety Report 7647924-X (Version None)
Quarter: 2011Q3

REPORT INFORMATION
  Report Type: 
  Country: None (occurrence: None)
  Receive Date: 20110801
  Receipt Date: 20110722
  Transmission Date: 20111222
  Serious: Yes (Other)
  Sender: FDA-Public Use
  Company Number: JP-ASTRAZENECA-2011SE44746

PATIENT
  Age: 54 Year
  Sex: Female

DRUGS (4)
  1. LEVOTHYROXINE SODIUM [Concomitant]
     Indication: HYPOTHYROIDISM
     Route: 065
  2. VENTOLIN HFA [Concomitant]
     Indication: ASTHMA
     Route: 055
  3. CANDESARTAN CILEXETIL [Suspect]
     Indication: PRODUCT USED FOR UNKNOWN INDICATION
     Dosage: PT TOOK IT FOR QUITE A FEW YEARS AND HAD BREATHING DIFFICULTIES, HER DOCTOR HAD TAKEN HER OFF AMIAS
     Route: 048
  4. CANDESARTAN CILEXETIL [Suspect]
     Route: 048

REACTIONS (5)
  - BREAST SWELLING [None]
  - FATIGUE [None]
  - WHITE BLOOD CELL COUNT DECREASED [None]
  - LACTATION DISORDER [None]
  - ASTHMA [None]
